FAERS Safety Report 6936363-2 (Version None)
Quarter: 2010Q3

REPORT INFORMATION
  Report Type: 
  Country: None (occurrence: None)
  Receive Date: 20100818
  Receipt Date: 20100803
  Transmission Date: 20110219
  Serious: Yes (Other)
  Sender: FDA-Public Use
  Company Number: TRP_07056_2010

PATIENT
  Sex: Female

DRUGS (12)
  1. INFERGEN [Suspect]
     Indication: HEPATITIS C
     Dosage: 15 UG QD, SUBCUTANEOUS
     Route: 058
     Dates: start: 20100610
  2. RIBAVIRIN [Suspect]
     Indication: HEPATITIS C
     Dosage: 200 MG BID, ORAL
     Route: 048
     Dates: start: 20100610
  3. SINGULAIR [Concomitant]
  4. TRAZODONE HCL [Concomitant]
  5. XANAX [Concomitant]
  6. SUCRALFATE [Concomitant]
  7. NORVASC [Concomitant]
  8. INVEGA [Concomitant]
  9. ZALEPLON [Concomitant]
  10. PREMARIN [Concomitant]
  11. OMEPRAZOLE [Concomitant]
  12. MULTI-VITAMIN [Concomitant]

REACTIONS (4)
  - DYSPNOEA [None]
  - FATIGUE [None]
  - SLEEP APNOEA SYNDROME [None]
  - WRONG TECHNIQUE IN DRUG USAGE PROCESS [None]
